FAERS Safety Report 8942431 (Version 2)
Quarter: 2013Q2

REPORT INFORMATION
  Report Type: Spontaneous
  Country: DK (occurrence: GB)
  Receive Date: 20121204
  Receipt Date: 20130403
  Transmission Date: 20140414
  Serious: Yes (Other)
  Sender: FDA-Public Use
  Company Number: GB-FRI-1000040757

PATIENT
  Age: 58 Year
  Sex: Male

DRUGS (6)
  1. ESCITALOPRAM [Suspect]
     Indication: DEPRESSION
     Dosage: 20 MG
     Route: 048
  2. ESCITALOPRAM [Interacting]
     Indication: ANXIETY
  3. ASPIRIN [Concomitant]
     Dosage: 75 MG
     Dates: start: 2005
  4. ALLOPURINOL [Concomitant]
     Dosage: 100 MG
  5. VALACICLOVIR [Concomitant]
     Dosage: 500 MG
  6. DIAZEPAM [Concomitant]

REACTIONS (11)
  - Metal poisoning [Unknown]
  - Burnout syndrome [Recovering/Resolving]
  - Disturbance in attention [Recovering/Resolving]
  - Confusional state [Recovering/Resolving]
  - Asthenopia [Recovering/Resolving]
  - Tinnitus [Not Recovered/Not Resolved]
  - Furuncle [Recovering/Resolving]
  - Malaise [Recovering/Resolving]
  - Affect lability [Recovering/Resolving]
  - Irritability [Recovering/Resolving]
  - Drug interaction [Not Recovered/Not Resolved]
